FAERS Safety Report 24205267 (Version 1)
Quarter: 2024Q3

REPORT INFORMATION
  Report Type: Spontaneous
  Country: US (occurrence: US)
  Receive Date: 20240813
  Receipt Date: 20240813
  Transmission Date: 20241017
  Serious: Yes (Other)
  Sender: Day One Biopharmaceuticals
  Company Number: US-DAY ONE BIOPHARMACEUTICALS, INC.-2024US000539

PATIENT
  Age: 12 Year
  Sex: Male
  Weight: 49.887 kg

DRUGS (1)
  1. OJEMDA [Suspect]
     Active Substance: TOVORAFENIB
     Indication: Glioma
     Dosage: 525 MG (21 ML), 1/WEEK
     Route: 065
     Dates: start: 202407

REACTIONS (1)
  - Muscular weakness [Unknown]

NARRATIVE: CASE EVENT DATE: 20240720
